FAERS Safety Report 8244498-X (Version None)
Quarter: 2012Q1

REPORT INFORMATION
  Report Type: 
  Country: None (occurrence: None)
  Receive Date: 20120329
  Receipt Date: 20120316
  Transmission Date: 20120608
  Serious: Yes (Other)
  Sender: FDA-Public Use
  Company Number: PHEH2012US005951

PATIENT
  Sex: Female

DRUGS (9)
  1. EXELON [Suspect]
     Dosage: UNK UKN, UNK
  2. LEVOTHYROXINE SODIUM [Concomitant]
     Dosage: UNK UKN, UNK
  3. CELEXA [Concomitant]
     Dosage: UNK UKN, UNK
  4. VITAMIN D [Concomitant]
     Dosage: UNK UKN, UNK
  5. EXELON [Suspect]
     Dosage: 9.5 MG (1 PATCH) PER DAY
     Route: 062
  6. EXELON [Suspect]
  7. ARICEPT [Suspect]
     Dosage: UNK UKN, UNK
  8. SIMVASTATIN [Concomitant]
     Dosage: UNK UKN, UNK
  9. MELOXICAM [Concomitant]
     Dosage: UNK UKN, UNK

REACTIONS (8)
  - TREMOR [None]
  - LOSS OF CONSCIOUSNESS [None]
  - APPLICATION SITE EROSION [None]
  - APPLICATION SITE PAIN [None]
  - APPLICATION SITE ERYTHEMA [None]
  - APPLICATION SITE URTICARIA [None]
  - ABDOMINAL DISCOMFORT [None]
  - APPLICATION SITE RASH [None]
